FAERS Safety Report 9062979 (Version 1)
Quarter: 2013Q1

REPORT INFORMATION
  Report Type: Report from Study
  Country: US (occurrence: US)
  Receive Date: 20130129
  Receipt Date: 20130129
  Transmission Date: 20140127
  Serious: No
  Sender: FDA-Public Use
  Company Number: US-ABBOTT-12P-163-0948137-00

PATIENT
  Sex: 0
  Weight: 77.63 kg

DRUGS (3)
  1. HUMIRA 40 MG/0.8 ML PEN [Suspect]
     Indication: CROHN^S DISEASE
     Dosage: 80MG 1 PER 2 WEEKS LOADING DOSE
     Dates: start: 201206, end: 201206
  2. HUMIRA 40 MG/0.8 ML PEN [Suspect]
     Dosage: 40MG 1 SHOT ON DAY 15 FOR LOADING DOSE
     Dates: start: 201206, end: 201206
  3. PRILOSEC [Concomitant]
     Indication: PRODUCT USED FOR UNKNOWN INDICATION

REACTIONS (2)
  - Burning sensation [Recovering/Resolving]
  - Paraesthesia [Recovering/Resolving]
